FAERS Safety Report 9733797 (Version 1)
Quarter: 2013Q4

REPORT INFORMATION
  Report Type: Spontaneous
  Country: GB (occurrence: GB)
  Receive Date: 20131205
  Receipt Date: 20131205
  Transmission Date: 20140711
  Serious: Yes (Other)
  Sender: FDA-Public Use
  Company Number: PHHY2013GB138606

PATIENT
  Age: 63 Year
  Sex: Female

DRUGS (4)
  1. METRONIDAZOLE [Suspect]
     Indication: TOOTH INFECTION
     Dosage: 200 MG, UNK
     Route: 048
     Dates: start: 20131111, end: 20131111
  2. INALER [Concomitant]
     Indication: ASTHMA
     Dosage: UNK
  3. SOTALOL [Concomitant]
     Indication: HEART RATE INCREASED
     Dosage: UNK
  4. BETAHISTINE [Concomitant]
     Indication: MENIERE^S DISEASE

REACTIONS (2)
  - Heart rate irregular [Recovered/Resolved]
  - Heart rate increased [Recovered/Resolved]
